FAERS Safety Report 4634867-9 (Version None)
Quarter: 2005Q2

REPORT INFORMATION
  Report Type: 
  Country: None (occurrence: None)
  Receive Date: 20050412
  Receipt Date: 20050404
  Transmission Date: 20051028
  Serious: No
  Sender: FDA-Public Use
  Company Number: 2005PK00546

PATIENT
  Age: 56 Year
  Sex: Male
  Weight: 75.5 kg

DRUGS (2)
  1. CASODEX [Suspect]
     Indication: PROSTATE CANCER
     Dosage: 150 MG DAILY PO
     Route: 048
     Dates: start: 20050306
  2. ZOMETA [Concomitant]

REACTIONS (3)
  - SPERMATIC CORD DISORDER [None]
  - SPERMATIC CORD PAIN [None]
  - SWELLING [None]
